FAERS Safety Report 13824350 (Version 1)
Quarter: 2017Q3

REPORT INFORMATION
  Report Type: Spontaneous
  Country: US (occurrence: US)
  Receive Date: 20170802
  Receipt Date: 20170802
  Transmission Date: 20171127
  Serious: No
  Sender: FDA-Public Use
  Company Number: US-BAYER-2017-147204

PATIENT

DRUGS (1)
  1. MIRALAX [Suspect]
     Active Substance: POLYETHYLENE GLYCOL 3350
     Dosage: UNK, 17 GRAMS TWICE A DAY
     Route: 065

REACTIONS (5)
  - Inappropriate prescribing [Unknown]
  - Constipation [Unknown]
  - Incorrect drug administration duration [Unknown]
  - Drug ineffective [Unknown]
  - Overdose [Unknown]
